FAERS Safety Report 17856033 (Version 17)
Quarter: 2022Q4

REPORT INFORMATION
  Report Type: Spontaneous
  Country: GB (occurrence: GB)
  Receive Date: 20200603
  Receipt Date: 20221017
  Transmission Date: 20230113
  Serious: Yes (Death, Other)
  Sender: FDA-Public Use
  Company Number: GB-MYLANLABS-2020M1053583

PATIENT
  Age: 57 Year
  Sex: Male

DRUGS (88)
  1. TENOFOVIR DISOPROXIL [Suspect]
     Active Substance: TENOFOVIR DISOPROXIL
     Indication: Product used for unknown indication
     Dosage: 245 MILLIGRAM, QD (245 MG, 1X/DAY)
     Route: 065
  2. TENOFOVIR DISOPROXIL [Suspect]
     Active Substance: TENOFOVIR DISOPROXIL
     Dosage: UNK UNK, QD
     Route: 065
  3. TENOFOVIR DISOPROXIL [Suspect]
     Active Substance: TENOFOVIR DISOPROXIL
     Dosage: 150 MILLIGRAM, QD
     Route: 065
  4. TENOFOVIR DISOPROXIL [Suspect]
     Active Substance: TENOFOVIR DISOPROXIL
     Dosage: UNK, QD (STRENGTH: 245 MG)
     Route: 065
  5. TENOFOVIR DISOPROXIL [Suspect]
     Active Substance: TENOFOVIR DISOPROXIL
     Dosage: 150 MILLIGRAM, QD(STRENGTH: 245 MG)
     Route: 065
  6. TENOFOVIR DISOPROXIL [Suspect]
     Active Substance: TENOFOVIR DISOPROXIL
     Dosage: 245 MILLIGRAM, QD(STRENGTH: 245 MG)
     Route: 065
  7. TENOFOVIR DISOPROXIL [Suspect]
     Active Substance: TENOFOVIR DISOPROXIL
     Dosage: 245 MILLIGRAM, QD(245 MILLIGRAM, QD)
     Route: 065
  8. TENOFOVIR DISOPROXIL [Suspect]
     Active Substance: TENOFOVIR DISOPROXIL
     Dosage: 150 MILLIGRAM, QD(150 MILLIGRAM, QD)
     Route: 065
  9. ACYCLOVIR [Suspect]
     Active Substance: ACYCLOVIR
     Indication: Product used for unknown indication
     Dosage: BID (UNK, 2X/DAY)
     Route: 065
  10. ACYCLOVIR [Suspect]
     Active Substance: ACYCLOVIR
     Dosage: 400 MILLIGRAM, QD (400 MG, 1X/DAY)
     Route: 065
  11. ACYCLOVIR [Suspect]
     Active Substance: ACYCLOVIR
     Dosage: UNK, QD (1X/DAY)
     Route: 065
  12. ACYCLOVIR [Suspect]
     Active Substance: ACYCLOVIR
     Dosage: UNK, QD (STRENGTH: 400 MG)
     Route: 065
  13. ACYCLOVIR [Suspect]
     Active Substance: ACYCLOVIR
     Dosage: UNK UNK, BID
     Route: 065
  14. ACYCLOVIR [Suspect]
     Active Substance: ACYCLOVIR
     Dosage: 400 MILLIGRAM, QD(400 MILLIGRAM, QD)
     Route: 065
  15. ACYCLOVIR [Suspect]
     Active Substance: ACYCLOVIR
     Dosage: UNK, QD(UNK UNK, QD)
     Route: 065
  16. LAMIVUDINE [Suspect]
     Active Substance: LAMIVUDINE
     Indication: Product used for unknown indication
     Dosage: BID ( 2X/DAY)
     Route: 065
  17. LAMIVUDINE [Suspect]
     Active Substance: LAMIVUDINE
     Dosage: 300 MILLIGRAM, QD (150 MILLIGRAM, BID)
     Route: 065
  18. LAMIVUDINE [Suspect]
     Active Substance: LAMIVUDINE
     Dosage: QD (1X/DAY)
     Route: 065
  19. LAMIVUDINE [Suspect]
     Active Substance: LAMIVUDINE
     Dosage: 150 MILLIGRAM, QD
     Route: 065
  20. LAMIVUDINE [Suspect]
     Active Substance: LAMIVUDINE
     Dosage: 300 MILLIGRAM (UNK UNK, BID)
     Route: 065
  21. LAMIVUDINE [Suspect]
     Active Substance: LAMIVUDINE
     Dosage: UNK, QD (STRENGTH: 150 MG)
     Route: 065
  22. LAMIVUDINE [Suspect]
     Active Substance: LAMIVUDINE
     Dosage: UNK, BID(UNK UNK BID)
     Route: 065
  23. LAMIVUDINE [Suspect]
     Active Substance: LAMIVUDINE
     Dosage: 150 MILLIGRAM, QD(150 MILLIGRAM, QD)
     Route: 065
  24. LAMIVUDINE [Suspect]
     Active Substance: LAMIVUDINE
     Dosage: UNK, QD(UNK UNK, QD)
     Route: 065
  25. LAMIVUDINE [Suspect]
     Active Substance: LAMIVUDINE
     Dosage: 150 MILLIGRAM, BID
     Route: 065
  26. PREZISTA [Suspect]
     Active Substance: DARUNAVIR ETHANOLATE
     Indication: Product used for unknown indication
     Dosage: BID (2X/DAY)
     Route: 065
  27. PREZISTA [Suspect]
     Active Substance: DARUNAVIR ETHANOLATE
     Dosage: 600 MILLIGRAM, QD (600 MG, 1X/DAY)
     Route: 048
  28. PREZISTA [Suspect]
     Active Substance: DARUNAVIR ETHANOLATE
     Dosage: QD (UNK, 1X/DAY)
     Route: 065
  29. PREZISTA [Suspect]
     Active Substance: DARUNAVIR ETHANOLATE
     Dosage: UNK, QD (STRENGTH: 600 MG)
     Route: 065
  30. PREZISTA [Suspect]
     Active Substance: DARUNAVIR ETHANOLATE
     Dosage: UNK, QD
     Route: 065
  31. PREZISTA [Suspect]
     Active Substance: DARUNAVIR ETHANOLATE
     Dosage: 600 MILLIGRAM, QD
     Route: 065
  32. PREZISTA [Suspect]
     Active Substance: DARUNAVIR ETHANOLATE
     Dosage: 600 MILLIGRAM, BID
     Route: 065
  33. PREZISTA [Suspect]
     Active Substance: DARUNAVIR ETHANOLATE
     Dosage: 600 MILLIGRAM
     Route: 065
  34. PREZISTA [Suspect]
     Active Substance: DARUNAVIR ETHANOLATE
     Dosage: UNK, BID
     Route: 065
  35. PREZISTA [Suspect]
     Active Substance: DARUNAVIR ETHANOLATE
     Dosage: 600 MG, QD
     Route: 048
  36. ISENTRESS [Suspect]
     Active Substance: RALTEGRAVIR POTASSIUM
     Indication: Product used for unknown indication
     Dosage: UNK, BID, (2X/DAY)
     Route: 048
  37. ISENTRESS [Suspect]
     Active Substance: RALTEGRAVIR POTASSIUM
     Dosage: 400 MILLIGRAM, QD (400 MG, 1X/DAY)
     Route: 048
  38. ISENTRESS [Suspect]
     Active Substance: RALTEGRAVIR POTASSIUM
     Dosage: 1 DOSAGE FORM, BID (1 DF, 2X/DAY (ONCE A DAY, BID)
     Route: 065
  39. ISENTRESS [Suspect]
     Active Substance: RALTEGRAVIR POTASSIUM
     Dosage: 2 DOSAGE FORM, QD
     Route: 065
  40. ISENTRESS [Suspect]
     Active Substance: RALTEGRAVIR POTASSIUM
     Dosage: UNK, BID(UNK UNK, BID)
     Route: 048
  41. ISENTRESS [Suspect]
     Active Substance: RALTEGRAVIR POTASSIUM
     Dosage: 400 MILLIGRAM, QD(400 MILLIGRAM, QD)
     Route: 048
  42. ISENTRESS [Suspect]
     Active Substance: RALTEGRAVIR POTASSIUM
     Dosage: 2 DOSAGE FORM, QD (1 DOSAGE FORM, BID)
     Route: 048
  43. ISENTRESS [Suspect]
     Active Substance: RALTEGRAVIR POTASSIUM
     Dosage: 2 DOSAGE FORM, QD (1 DOSAGE FORM, BID)
     Route: 065
  44. ISENTRESS [Suspect]
     Active Substance: RALTEGRAVIR POTASSIUM
     Dosage: 400 MILLIGRAM, QD, (400 MILLIGRAM ONCE A DAY, BID)
     Route: 048
  45. ISENTRESS [Suspect]
     Active Substance: RALTEGRAVIR POTASSIUM
     Dosage: 400 MILLIGRAM, QD(400 MILLIGRAM, QD)
     Route: 065
  46. ISENTRESS [Suspect]
     Active Substance: RALTEGRAVIR POTASSIUM
     Dosage: UNK, QD, (STRENGTH: 400 MG)
     Route: 065
  47. ISENTRESS [Suspect]
     Active Substance: RALTEGRAVIR POTASSIUM
     Dosage: 400 MILLIGRAM
     Route: 048
  48. ISENTRESS [Suspect]
     Active Substance: RALTEGRAVIR POTASSIUM
     Dosage: 400 MG
     Route: 065
  49. ISENTRESS [Suspect]
     Active Substance: RALTEGRAVIR POTASSIUM
     Dosage: 1 DOSAGE FORM, QD (1 DF, 2X/DAY (ONCE A DAY, BID)
     Route: 048
  50. NORVIR [Suspect]
     Active Substance: RITONAVIR
     Indication: Product used for unknown indication
     Dosage: 100 MILLIGRAM, BID(100 MG, 2X/DAY)
     Route: 065
  51. NORVIR [Suspect]
     Active Substance: RITONAVIR
     Dosage: 100 MILLIGRAM, QD (100 MG, 1X/DAY)
     Route: 065
  52. NORVIR [Suspect]
     Active Substance: RITONAVIR
     Dosage: UNK UNK, QD, (1X/DAY)
     Route: 065
  53. NORVIR [Suspect]
     Active Substance: RITONAVIR
     Dosage: 200 MILLIGRAM, QD
     Route: 065
  54. NORVIR [Suspect]
     Active Substance: RITONAVIR
     Dosage: 200 MG, QD ONCE A DAY(100 MILLIGRAM, BID)
     Route: 065
  55. NORVIR [Suspect]
     Active Substance: RITONAVIR
     Dosage: 100 MILLIGRAM, BID (200 MILLIGRAM, ONCE A DAY)
     Route: 065
  56. NORVIR [Suspect]
     Active Substance: RITONAVIR
     Dosage: UNK, QD (STRENGTH: 100 MG)
     Route: 065
  57. NORVIR [Suspect]
     Active Substance: RITONAVIR
     Dosage: UNK UNK, QD
     Route: 065
  58. NORVIR [Suspect]
     Active Substance: RITONAVIR
     Dosage: 200 MILLIGRAM, ONCE A DAY (STRENGTH: 100 MG)
     Route: 065
  59. NORVIR [Suspect]
     Active Substance: RITONAVIR
     Dosage: 100 MILLIGRAM, ONCE A DAY(100 MILLIGRAM , BID)
     Route: 065
  60. NORVIR [Suspect]
     Active Substance: RITONAVIR
     Dosage: 200 MILLIGRAM, QD(100 MILLIGRAM, BID)
     Route: 065
  61. NORVIR [Suspect]
     Active Substance: RITONAVIR
     Dosage: 100 MILLIGRAM, QD(100 MILLIGRAM, QD)
     Route: 065
  62. NORVIR [Suspect]
     Active Substance: RITONAVIR
     Dosage: 100 MILLIGRAM
     Route: 065
  63. RALTEGRAVIR [Suspect]
     Active Substance: RALTEGRAVIR
     Indication: Product used for unknown indication
     Dosage: UNK, QD (STRENGTH: 400 MG)
     Route: 065
  64. RALTEGRAVIR [Suspect]
     Active Substance: RALTEGRAVIR
     Dosage: 400 MILLIGRAM, QD, (BID)
     Route: 048
  65. RALTEGRAVIR [Suspect]
     Active Substance: RALTEGRAVIR
     Dosage: UNK, ONCE A DAY, BID
     Route: 065
  66. RALTEGRAVIR [Suspect]
     Active Substance: RALTEGRAVIR
     Dosage: UNK, QD (STRENGTH: 400 MG)
     Route: 065
  67. RALTEGRAVIR [Suspect]
     Active Substance: RALTEGRAVIR
     Dosage: 400 MILLIGRAM
     Route: 048
  68. RALTEGRAVIR [Suspect]
     Active Substance: RALTEGRAVIR
     Dosage: 1 DOSAGE FORM, BID ( (ONCE A DAY, BID)
     Route: 065
  69. DARUNAVIR [Suspect]
     Active Substance: DARUNAVIR
     Indication: Product used for unknown indication
     Dosage: 600 MILLIGRAM, QD (600 MG, 1X/DAY)
     Route: 065
  70. DARUNAVIR [Suspect]
     Active Substance: DARUNAVIR
     Dosage: UNK, 2X/DAY
     Route: 065
  71. DARUNAVIR [Suspect]
     Active Substance: DARUNAVIR
     Dosage: UNK, 1X/DAY
     Route: 065
  72. DARUNAVIR [Suspect]
     Active Substance: DARUNAVIR
     Dosage: 600 MILLIGRAM, QD
     Route: 048
  73. DARUNAVIR [Suspect]
     Active Substance: DARUNAVIR
     Dosage: 600 MILLIGRAM, QD(STRENGTH: 600 MG )
     Route: 065
  74. DARUNAVIR [Suspect]
     Active Substance: DARUNAVIR
     Dosage: 600 MILLIGRAM, QD
     Route: 065
  75. DARUNAVIR [Suspect]
     Active Substance: DARUNAVIR
     Dosage: 600 MILLIGRAM
     Route: 065
  76. DARUNAVIR [Suspect]
     Active Substance: DARUNAVIR
     Dosage: 400 MILLIGRAM ONCE A DAY, BID
     Route: 048
  77. ISENTRESS [Suspect]
     Active Substance: RALTEGRAVIR POTASSIUM
     Indication: Product used for unknown indication
     Dosage: UNK UNK, BID
     Route: 065
  78. ISENTRESS [Suspect]
     Active Substance: RALTEGRAVIR POTASSIUM
     Dosage: 400 MILLIGRAM, QD
     Route: 065
  79. ISENTRESS [Suspect]
     Active Substance: RALTEGRAVIR POTASSIUM
     Dosage: 2 DOSAGE FORM, QD
     Route: 065
  80. ISENTRESS [Suspect]
     Active Substance: RALTEGRAVIR POTASSIUM
     Dosage: 400 MILLIGRAM, QD
     Route: 048
  81. RALTEGRAVIR POTASSIUM [Suspect]
     Active Substance: RALTEGRAVIR POTASSIUM
     Indication: Product used for unknown indication
     Dosage: 400 MILLIGRAM, QD (400 MILLIGRAM ONCE A DAY, BID)
     Route: 048
  82. VIREAD [Suspect]
     Active Substance: TENOFOVIR DISOPROXIL FUMARATE
     Indication: Product used for unknown indication
     Dosage: 245 MILLIGRAM, QD (245 MG, QD)
     Route: 065
  83. LAMIVUDINE [Suspect]
     Active Substance: LAMIVUDINE
     Indication: Product used for unknown indication
     Dosage: 150 MILLIGRAM, BID (300 MILLIGRAM QD)
     Route: 065
  84. LAMIVUDINE [Suspect]
     Active Substance: LAMIVUDINE
     Dosage: UNK
     Route: 065
  85. LAMIVUDINE [Suspect]
     Active Substance: LAMIVUDINE
     Dosage: 300 MILLIGRAM, QD ,(BID)
     Route: 065
  86. RAMIPRIL [Suspect]
     Active Substance: RAMIPRIL
     Indication: Product used for unknown indication
     Dosage: UNK
     Route: 065
  87. RAMIPRIL [Suspect]
     Active Substance: RAMIPRIL
     Dosage: UNK
     Route: 065
  88. RAMIPRIL [Concomitant]
     Active Substance: RAMIPRIL
     Indication: Product used for unknown indication
     Dosage: UNK
     Route: 065

REACTIONS (3)
  - Death [Fatal]
  - Fall [Fatal]
  - Brain stem stroke [Fatal]

NARRATIVE: CASE EVENT DATE: 20200401
